FAERS Safety Report 9556121 (Version 1)
Quarter: 2013Q3

REPORT INFORMATION
  Report Type: Spontaneous
  Country: US (occurrence: None)
  Receive Date: 20130726
  Receipt Date: 20130726
  Transmission Date: 20140515
  Serious: Yes (Hospitalization)
  Sender: FDA-Public Use
  Company Number: UTC-023019

PATIENT
  Age: 57 Year
  Sex: Female
  Weight: 89.55 kg

DRUGS (2)
  1. REMODULIN (TRESPROSTINIL SODIUM) [Suspect]
     Indication: COR PULMONALE CHRONIC
     Dates: start: 20120724
  2. REVATIO (SILDENAFIL CITRATE) (UNKNOWN) (SILDENAFIL) [Concomitant]

REACTIONS (1)
  - Device related infection [None]
